FAERS Safety Report 16000656 (Version 1)
Quarter: 2019Q1

REPORT INFORMATION
  Report Type: Spontaneous
  Country: GB (occurrence: GB)
  Receive Date: 20190225
  Receipt Date: 20190225
  Transmission Date: 20190418
  Serious: Yes (Other)
  Sender: FDA-Public Use
  Company Number: GB-MYLANLABS-2019M1015493

PATIENT
  Sex: Male

DRUGS (2)
  1. DOXYCYCLINE. [Suspect]
     Active Substance: DOXYCYCLINE
     Indication: GONORRHOEA
     Dosage: 100 MG, UNK
     Route: 048
  2. CEFTRIAXONE. [Suspect]
     Active Substance: CEFTRIAXONE
     Indication: GONORRHOEA
     Dosage: 1 G, UNK
     Route: 030

REACTIONS (3)
  - Drug resistance [Unknown]
  - Pathogen resistance [Unknown]
  - Treatment failure [Unknown]
